FAERS Safety Report 9167075 (Version 2)
Quarter: 2014Q1

REPORT INFORMATION
  Report Type: Spontaneous
  Country: GB (occurrence: None)
  Receive Date: 20130304
  Receipt Date: 20140129
  Transmission Date: 20141002
  Serious: Yes (Life-Threatening, Hospitalization)
  Sender: FDA-Public Use
  Company Number: 1616515

PATIENT
  Age: 72 Year
  Sex: Female
  Weight: 62 kg

DRUGS (20)
  1. METHOTREXATE [Suspect]
     Indication: RHEUMATOID ARTHRITIS
     Dates: end: 20121031
  2. SODIUM ALGINATE W/SODIUM BICARBONATE [Concomitant]
  3. (AMLODIPINE) [Concomitant]
  4. (ASPIRIN) [Concomitant]
  5. (ATORVASTATIN) [Concomitant]
  6. (BENZYDAMINE) [Concomitant]
  7. (BETAMETHASONE) [Concomitant]
  8. (CHOLECALCIFEROL) [Concomitant]
  9. (CARBOCISTEINE) [Concomitant]
  10. (CYCLIZINE) [Concomitant]
  11. (DARBEPOETIN ALFA) [Concomitant]
  12. (FOLIC ACID) [Concomitant]
  13. (FUROSEMIDE) [Concomitant]
  14. (MACROGOL 3350) [Concomitant]
  15. (METOCLOPRAMIDE) [Concomitant]
  16. (NEFOPAM) [Concomitant]
  17. (PARACETAMOL) [Concomitant]
  18. (RANITIDINE) [Concomitant]
  19. (SODIUM BICARBONATE) [Concomitant]
  20. (ZOPICLONE) [Concomitant]

REACTIONS (4)
  - Bone marrow failure [None]
  - Neutropenic sepsis [None]
  - Blood creatinine increased [None]
  - Blood urea increased [None]
